FAERS Safety Report 5955502-3 (Version None)
Quarter: 2008Q4

REPORT INFORMATION
  Report Type: 
  Country: None (occurrence: None)
  Receive Date: 20081112
  Receipt Date: 20081028
  Transmission Date: 20090506
  Serious: Yes (Hospitalization)
  Sender: FDA-Public Use
  Company Number: S08-FRA-02134-01

PATIENT
  Age: 81 Year
  Sex: Female

DRUGS (7)
  1. MEMANTINE (MEMANTINE HYDROCHLORIDE) (5 MLLIGRAM, TABLETS) [Suspect]
     Dosage: 10 MG (5 MG, 2 IN 1 D), ORAL
     Route: 048
     Dates: start: 20080425, end: 20080510
  2. LYPANTHYL (FENOFIBRATE) (145 MILLIGRAM, TABLETS) [Suspect]
     Dosage: 145 MG (145 MG, 1 IN 1 D), ORAL
     Route: 048
     Dates: end: 20080510
  3. DEPAMIDE (VALPROMIDE) (VALPROMIDE) [Concomitant]
  4. ARICEPT [Concomitant]
  5. ATACAND (CANDESARTAN CILEXETIL) (CANDESARTAN CILEXETIL) [Concomitant]
  6. VASTAREL (TRIMETAZIDINE) [Concomitant]
  7. ACTONEL (RISEDRONATE SODIUM) (RISEDRONATE SODIUM) [Concomitant]

REACTIONS (4)
  - PANCREATIC PSEUDOCYST [None]
  - PANCREATITIS [None]
  - PERITONEAL EFFUSION [None]
  - PLEURAL EFFUSION [None]
